FAERS Safety Report 5209908-0 (Version None)
Quarter: 2006Q4

REPORT INFORMATION
  Report Type: 
  Country: None (occurrence: None)
  Receive Date: 20061130
  Receipt Date: 20050614
  Transmission Date: 20070319
  Serious: Yes (Hospitalization)
  Sender: FDA-Public Use
  Company Number: 2005UW09135

PATIENT
  Sex: Male

DRUGS (2)
  1. ATACAND [Suspect]
  2. ATACAND HCT [Suspect]

REACTIONS (1)
  - HYPONATRAEMIA [None]
